FAERS Safety Report 9656535 (Version 1)
Quarter: 2013Q4

REPORT INFORMATION
  Report Type: Spontaneous
  Country: DE (occurrence: None)
  Receive Date: 20131028
  Receipt Date: 20131028
  Transmission Date: 20140711
  Serious: Yes (Hospitalization)
  Sender: FDA-Public Use
  Company Number: AUR-APL-2013-08836

PATIENT
  Sex: 0

DRUGS (3)
  1. PIPERACILLIN+TAZOBACTAM [Suspect]
     Indication: PNEUMONIA
     Dosage: UNKNOWN
  2. PIPERACILLIN+TAZOBACTAM [Suspect]
     Indication: PYREXIA
     Dosage: UNKNOWN
  3. DALTEPARIN [Suspect]
     Indication: THROMBOSIS PROPHYLAXIS

REACTIONS (5)
  - Pneumonia [None]
  - Petechiae [None]
  - Pyrexia [None]
  - Thrombocytopenia [None]
  - Platelet factor 4 increased [None]
